FAERS Safety Report 14401911 (Version 2)
Quarter: 2019Q4

REPORT INFORMATION
  Report Type: Spontaneous
  Country: JP (occurrence: JP)
  Receive Date: 20180117
  Receipt Date: 20191115
  Transmission Date: 20200122
  Serious: Yes (Hospitalization, Other)
  Sender: FDA-Public Use
  Company Number: JP-UNITED THERAPEUTICS-UNT-2015-014032

PATIENT
  Age: 70 Year
  Sex: Female
  Weight: 50.6 kg

DRUGS (90)
  1. EPOPROSTENOL. [Suspect]
     Active Substance: EPOPROSTENOL
     Indication: PULMONARY ARTERIAL HYPERTENSION
     Dosage: UNK
     Route: 042
     Dates: start: 201506, end: 20160128
  2. ADCIRCA [Concomitant]
     Active Substance: TADALAFIL
     Indication: SYSTEMIC LUPUS ERYTHEMATOSUS
  3. SPIRONOLACTONE. [Concomitant]
     Active Substance: SPIRONOLACTONE
     Indication: RIGHT VENTRICULAR FAILURE
     Dosage: UNK
     Route: 048
     Dates: end: 20170725
  4. LEXOTAN [Concomitant]
     Active Substance: BROMAZEPAM
     Indication: DEPRESSION
     Dosage: UNK
     Route: 048
     Dates: end: 20170725
  5. MACITENTAN [Concomitant]
     Active Substance: MACITENTAN
     Indication: PRODUCT USED FOR UNKNOWN INDICATION
     Route: 048
  6. SILDENAFIL CITRATE. [Concomitant]
     Active Substance: SILDENAFIL CITRATE
     Indication: PRODUCT USED FOR UNKNOWN INDICATION
     Route: 048
  7. REVATIO [Concomitant]
     Active Substance: SILDENAFIL CITRATE
     Indication: SYSTEMIC LUPUS ERYTHEMATOSUS
  8. REVATIO [Concomitant]
     Active Substance: SILDENAFIL CITRATE
     Indication: SYSTEMIC SCLERODERMA
  9. REVATIO [Concomitant]
     Active Substance: SILDENAFIL CITRATE
     Indication: SJOGREN^S SYNDROME
  10. FUROSEMIDE. [Concomitant]
     Active Substance: FUROSEMIDE
     Indication: PRODUCT USED FOR UNKNOWN INDICATION
     Dosage: UNK
     Route: 048
  11. SOLU-CORTEF [Concomitant]
     Active Substance: HYDROCORTISONE SODIUM SUCCINATE
     Indication: PRODUCT USED FOR UNKNOWN INDICATION
     Dosage: UNK
     Route: 065
     Dates: start: 20161029
  12. TRAMAL [Concomitant]
     Active Substance: TRAMADOL
     Dosage: 200 MG, QD
     Route: 048
     Dates: start: 20160218, end: 20160926
  13. LOXOPROFEN [Concomitant]
     Active Substance: LOXOPROFEN
     Indication: PRODUCT USED FOR UNKNOWN INDICATION
     Dosage: 180 MG, QD
     Route: 048
     Dates: start: 20151130, end: 20160730
  14. DUROTEP [Concomitant]
     Active Substance: FENTANYL
     Dosage: UNK, PER 3 DAYS
     Route: 062
     Dates: start: 20160206, end: 20170725
  15. LAC-B [Concomitant]
     Active Substance: BIFIDOBACTERIUM SPP.
     Indication: PROPHYLAXIS
     Dosage: UNK
     Route: 048
     Dates: start: 20161108, end: 20170725
  16. CEFTRIAXONE SODIUM HYDRATE [Concomitant]
     Active Substance: CEFTRIAXONE SODIUM
     Indication: PROPHYLAXIS
     Dosage: UNK
     Route: 042
     Dates: start: 20170120, end: 20170130
  17. EPOPROSTENOL. [Suspect]
     Active Substance: EPOPROSTENOL
     Indication: CONNECTIVE TISSUE DISORDER
     Dosage: 0.028 ?G/KG/MIN, CONTINUING
     Route: 042
     Dates: start: 20151204, end: 20160128
  18. ADCIRCA [Concomitant]
     Active Substance: TADALAFIL
     Indication: CONNECTIVE TISSUE DISORDER
  19. ADCIRCA [Concomitant]
     Active Substance: TADALAFIL
     Indication: SJOGREN^S SYNDROME
  20. FERROUS SULFATE. [Concomitant]
     Active Substance: FERROUS SULFATE
     Indication: IRON DEFICIENCY ANAEMIA
     Dosage: UNK
     Route: 048
     Dates: end: 20160926
  21. WARFARIN [Concomitant]
     Active Substance: WARFARIN
     Indication: SYSTEMIC SCLERODERMA
  22. ADEMPAS [Concomitant]
     Active Substance: RIOCIGUAT
     Indication: SYSTEMIC SCLERODERMA
  23. CEFZON [Concomitant]
     Active Substance: CEFDINIR
     Dosage: UNK
     Route: 048
     Dates: start: 20160128, end: 20160130
  24. DEXMEDETOMIDINE HCL [Concomitant]
     Active Substance: DEXMEDETOMIDINE HYDROCHLORIDE
     Indication: SEDATION
     Dosage: UNK
     Route: 042
     Dates: end: 20161103
  25. FOLIAMIN [Concomitant]
     Active Substance: FOLIC ACID
     Indication: PRODUCT USED FOR UNKNOWN INDICATION
     Dosage: UNK
     Route: 048
     Dates: start: 20170201, end: 20170301
  26. REMODULIN [Suspect]
     Active Substance: TREPROSTINIL
     Indication: MIXED CONNECTIVE TISSUE DISEASE
     Dosage: 0.120 ?G/KG, CONTINUING
     Route: 058
  27. TRACLEER [Concomitant]
     Active Substance: BOSENTAN
     Indication: CONNECTIVE TISSUE DISORDER
  28. GASTROM [Concomitant]
     Active Substance: ECABET SODIUM
     Indication: PROPHYLAXIS
     Dosage: UNK
     Route: 048
     Dates: end: 20160926
  29. SODIUM RABEPRAZOLE [Concomitant]
     Active Substance: RABEPRAZOLE SODIUM
     Indication: PROPHYLAXIS
     Dosage: UNK
     Route: 048
     Dates: end: 20160730
  30. CARELOAD [Concomitant]
     Active Substance: BERAPROST SODIUM
     Indication: SYSTEMIC SCLERODERMA
  31. CARELOAD [Concomitant]
     Active Substance: BERAPROST SODIUM
     Indication: SJOGREN^S SYNDROME
  32. ADEMPAS [Concomitant]
     Active Substance: RIOCIGUAT
     Indication: MIXED CONNECTIVE TISSUE DISEASE
  33. MORPHINE HYDROCHLORIDE [Concomitant]
     Active Substance: MORPHINE HYDROCHLORIDE
     Indication: PRODUCT USED FOR UNKNOWN INDICATION
     Dosage: UNK
     Route: 048
     Dates: start: 20160201, end: 20170725
  34. FEXOFENADINE HYDROCHLORIDE. [Concomitant]
     Active Substance: FEXOFENADINE HYDROCHLORIDE
     Indication: PROPHYLAXIS
     Dosage: UNK
     Route: 048
     Dates: start: 20161129, end: 20170725
  35. REMODULIN [Suspect]
     Active Substance: TREPROSTINIL
     Indication: PULMONARY ARTERIAL HYPERTENSION
     Dosage: UNK
     Route: 058
     Dates: start: 20151028
  36. REMODULIN [Suspect]
     Active Substance: TREPROSTINIL
     Indication: SYSTEMIC LUPUS ERYTHEMATOSUS
  37. REMODULIN [Suspect]
     Active Substance: TREPROSTINIL
     Indication: SYSTEMIC SCLERODERMA
  38. REMODULIN [Suspect]
     Active Substance: TREPROSTINIL
     Indication: SJOGREN^S SYNDROME
  39. EPOPROSTENOL. [Suspect]
     Active Substance: EPOPROSTENOL
     Indication: MIXED CONNECTIVE TISSUE DISEASE
  40. ADCIRCA [Concomitant]
     Active Substance: TADALAFIL
     Indication: PULMONARY ARTERIAL HYPERTENSION
     Dosage: UNK
     Route: 048
     Dates: start: 201011, end: 20170725
  41. WYPAX [Concomitant]
     Active Substance: LORAZEPAM
     Indication: DEPRESSION
     Dosage: UNK
     Route: 048
     Dates: end: 20170725
  42. PREDONINE [Concomitant]
     Active Substance: PREDNISOLONE
     Indication: SYSTEMIC LUPUS ERYTHEMATOSUS
     Dosage: UNK
     Route: 048
     Dates: end: 20170725
  43. WARFARIN [Concomitant]
     Active Substance: WARFARIN
     Indication: CONNECTIVE TISSUE DISORDER
  44. CARELOAD [Concomitant]
     Active Substance: BERAPROST SODIUM
     Indication: MIXED CONNECTIVE TISSUE DISEASE
  45. ADEMPAS [Concomitant]
     Active Substance: RIOCIGUAT
     Indication: PULMONARY ARTERIAL HYPERTENSION
     Dosage: UNK
     Route: 048
     Dates: start: 20151124, end: 20170725
  46. OPSUMIT [Concomitant]
     Active Substance: MACITENTAN
     Indication: PULMONARY ARTERIAL HYPERTENSION
     Dosage: UNK
     Route: 048
     Dates: start: 20160222, end: 20170725
  47. OPSUMIT [Concomitant]
     Active Substance: MACITENTAN
     Indication: SYSTEMIC LUPUS ERYTHEMATOSUS
  48. OPSUMIT [Concomitant]
     Active Substance: MACITENTAN
     Indication: SJOGREN^S SYNDROME
  49. HEPARIN SODIUM. [Concomitant]
     Active Substance: HEPARIN SODIUM
     Indication: PULMONARY ARTERIAL HYPERTENSION
     Dosage: UNK
     Route: 065
     Dates: start: 20160912, end: 201610
  50. HEPARIN SODIUM. [Concomitant]
     Active Substance: HEPARIN SODIUM
     Indication: SYSTEMIC SCLERODERMA
  51. PREDNISOLONE. [Concomitant]
     Active Substance: PREDNISOLONE
     Indication: PRODUCT USED FOR UNKNOWN INDICATION
     Dosage: UNK
     Route: 048
     Dates: start: 20161026, end: 20161207
  52. SAMSCA [Concomitant]
     Active Substance: TOLVAPTAN
     Indication: PRODUCT USED FOR UNKNOWN INDICATION
     Dosage: UNK
     Route: 048
     Dates: start: 20170619, end: 20170725
  53. PAXIL [Concomitant]
     Active Substance: PAROXETINE HYDROCHLORIDE
     Indication: DEPRESSION
     Dosage: UNK
     Route: 048
     Dates: end: 20170725
  54. K-SUPPLY [Concomitant]
     Active Substance: POTASSIUM CHLORIDE
     Indication: HYPOKALAEMIA
     Dosage: UNK
     Route: 048
     Dates: end: 20170725
  55. ADEMPAS [Concomitant]
     Active Substance: RIOCIGUAT
     Indication: CONNECTIVE TISSUE DISORDER
  56. ADEMPAS [Concomitant]
     Active Substance: RIOCIGUAT
     Indication: SJOGREN^S SYNDROME
  57. REVATIO [Concomitant]
     Active Substance: SILDENAFIL CITRATE
     Indication: PULMONARY ARTERIAL HYPERTENSION
     Dosage: UNK
     Route: 048
     Dates: start: 20160216, end: 20170725
  58. HEPARIN SODIUM. [Concomitant]
     Active Substance: HEPARIN SODIUM
     Indication: SYSTEMIC LUPUS ERYTHEMATOSUS
  59. FUROSEMIDE. [Concomitant]
     Active Substance: FUROSEMIDE
     Indication: PRODUCT USED FOR UNKNOWN INDICATION
     Dosage: UNK
     Route: 065
  60. WARFARIN [Concomitant]
     Active Substance: WARFARIN
     Indication: PULMONARY ARTERIAL HYPERTENSION
     Dosage: UNK
     Route: 048
     Dates: end: 20160912
  61. WARFARIN [Concomitant]
     Active Substance: WARFARIN
     Indication: MIXED CONNECTIVE TISSUE DISEASE
     Dosage: UNK
     Route: 048
     Dates: start: 20161027, end: 20170725
  62. ADEMPAS [Concomitant]
     Active Substance: RIOCIGUAT
     Indication: SYSTEMIC LUPUS ERYTHEMATOSUS
  63. HEPARIN SODIUM. [Concomitant]
     Active Substance: HEPARIN SODIUM
     Indication: SJOGREN^S SYNDROME
  64. REMODULIN [Suspect]
     Active Substance: TREPROSTINIL
     Indication: CONNECTIVE TISSUE DISORDER
     Dosage: 0.048 ?G/KG, CONTINUING
     Route: 058
     Dates: start: 20151204
  65. EPOPROSTENOL. [Suspect]
     Active Substance: EPOPROSTENOL
     Indication: SJOGREN^S SYNDROME
  66. ADCIRCA [Concomitant]
     Active Substance: TADALAFIL
     Indication: SYSTEMIC SCLERODERMA
  67. TRACLEER [Concomitant]
     Active Substance: BOSENTAN
     Indication: SJOGREN^S SYNDROME
  68. ALENDRONATE SODIUM HYDRATE [Concomitant]
     Active Substance: ALENDRONATE SODIUM
     Indication: PROPHYLAXIS
     Dosage: UNK
     Route: 065
     Dates: end: 20160926
  69. WARFARIN [Concomitant]
     Active Substance: WARFARIN
     Indication: SJOGREN^S SYNDROME
  70. CARELOAD [Concomitant]
     Active Substance: BERAPROST SODIUM
     Indication: PULMONARY ARTERIAL HYPERTENSION
     Dosage: UNK
     Route: 048
     Dates: start: 20151121, end: 20170725
  71. CARELOAD [Concomitant]
     Active Substance: BERAPROST SODIUM
     Indication: CONNECTIVE TISSUE DISORDER
  72. CARELOAD [Concomitant]
     Active Substance: BERAPROST SODIUM
     Indication: SYSTEMIC LUPUS ERYTHEMATOSUS
  73. CEFZON [Concomitant]
     Active Substance: CEFDINIR
     Indication: SALIVARY GLAND CALCULUS
     Dosage: UNK
     Route: 048
     Dates: start: 20151204, end: 20151209
  74. OPSUMIT [Concomitant]
     Active Substance: MACITENTAN
     Indication: SYSTEMIC SCLERODERMA
  75. NEXIUM [Concomitant]
     Active Substance: ESOMEPRAZOLE MAGNESIUM
     Indication: PROPHYLAXIS
     Dosage: UNK
     Route: 048
     Dates: start: 20160730, end: 20170725
  76. POTASSIUM CHLORIDE. [Concomitant]
     Active Substance: POTASSIUM CHLORIDE
     Indication: PROPHYLAXIS
     Dosage: UNK
     Route: 042
     Dates: end: 20161027
  77. TRAMAL [Concomitant]
     Active Substance: TRAMADOL
     Indication: PRODUCT USED FOR UNKNOWN INDICATION
     Dosage: 200 MG, QD
     Route: 048
     Dates: start: 20151130, end: 20160129
  78. RADICUT [Concomitant]
     Active Substance: EDARAVONE
     Indication: PROPHYLAXIS
     Dosage: UNK
     Route: 042
     Dates: start: 20161027, end: 20161029
  79. EPOPROSTENOL. [Suspect]
     Active Substance: EPOPROSTENOL
     Indication: SYSTEMIC LUPUS ERYTHEMATOSUS
  80. EPOPROSTENOL. [Suspect]
     Active Substance: EPOPROSTENOL
     Indication: SYSTEMIC SCLERODERMA
  81. ADCIRCA [Concomitant]
     Active Substance: TADALAFIL
     Indication: MIXED CONNECTIVE TISSUE DISEASE
  82. TRACLEER [Concomitant]
     Active Substance: BOSENTAN
     Indication: PULMONARY ARTERIAL HYPERTENSION
     Dosage: UNK
     Route: 048
     Dates: start: 201004, end: 20160221
  83. TRACLEER [Concomitant]
     Active Substance: BOSENTAN
     Indication: MIXED CONNECTIVE TISSUE DISEASE
  84. TRACLEER [Concomitant]
     Active Substance: BOSENTAN
     Indication: SYSTEMIC LUPUS ERYTHEMATOSUS
  85. TRACLEER [Concomitant]
     Active Substance: BOSENTAN
     Indication: SYSTEMIC SCLERODERMA
  86. LUPRAC [Concomitant]
     Active Substance: TORSEMIDE
     Indication: RIGHT VENTRICULAR FAILURE
     Dosage: UNK
     Route: 048
     Dates: end: 20160926
  87. WARFARIN [Concomitant]
     Active Substance: WARFARIN
     Indication: SYSTEMIC LUPUS ERYTHEMATOSUS
  88. BIOFERMIN [Concomitant]
     Active Substance: DIETARY SUPPLEMENT\PROBIOTICS
     Indication: PROPHYLAXIS
     Dosage: UNK
     Route: 048
     Dates: start: 20161026, end: 20170725
  89. DUROTEP [Concomitant]
     Active Substance: FENTANYL
     Indication: PRODUCT USED FOR UNKNOWN INDICATION
     Dosage: 2.1 MG, PER 3 DAYS
     Route: 062
     Dates: start: 20160128, end: 20160205
  90. DAIKENCHUTO [Concomitant]
     Active Substance: HERBALS
     Indication: PROPHYLAXIS
     Dosage: UNK
     Route: 048
     Dates: start: 20161103, end: 20161128

REACTIONS (14)
  - Infusion site pain [Recovering/Resolving]
  - Oedema peripheral [Recovered/Resolved]
  - Oxygen saturation decreased [Recovered/Resolved]
  - Epistaxis [Recovered/Resolved]
  - Colon cancer [Recovered/Resolved]
  - Malaise [Recovered/Resolved]
  - Infusion site discharge [Recovering/Resolving]
  - Right ventricular failure [Recovering/Resolving]
  - Infusion site swelling [Not Recovered/Not Resolved]
  - Infusion site induration [Not Recovered/Not Resolved]
  - Infusion site warmth [Not Recovered/Not Resolved]
  - Infusion site erythema [Not Recovered/Not Resolved]
  - Infusion site erosion [Recovering/Resolving]
  - Pyrexia [Not Recovered/Not Resolved]

NARRATIVE: CASE EVENT DATE: 201511
